FAERS Safety Report 26195063 (Version 1)
Quarter: 2025Q4

REPORT INFORMATION
  Report Type: Spontaneous
  Country: JP (occurrence: JP)
  Receive Date: 20251224
  Receipt Date: 20251224
  Transmission Date: 20260117
  Serious: Yes (Hospitalization)
  Sender: SANDOZ
  Company Number: JP-asahikaseip-2025-AER-07615

PATIENT
  Age: 79 Year
  Sex: Female

DRUGS (2)
  1. RECLAST [Suspect]
     Active Substance: ZOLEDRONIC ACID
     Indication: Product used for unknown indication
     Dosage: 5 MG, Q12MO
     Dates: start: 20241118
  2. RECLAST [Suspect]
     Active Substance: ZOLEDRONIC ACID
     Dosage: 5 MG, Q12MO
     Dates: start: 2025

REACTIONS (4)
  - Pneumonia [Unknown]
  - Bone density decreased [Unknown]
  - Coronavirus infection [Unknown]
  - Hypoaesthesia [Unknown]
